FAERS Safety Report 20714403 (Version 1)
Quarter: 2022Q2

REPORT INFORMATION
  Report Type: Spontaneous
  Country: GB (occurrence: GB)
  Receive Date: 20220415
  Receipt Date: 20220415
  Transmission Date: 20220721
  Serious: Yes (Hospitalization)
  Sender: FDA-Public Use
  Company Number: None

PATIENT
  Age: 32 Year
  Sex: Male

DRUGS (11)
  1. CLARITHROMYCIN [Suspect]
     Active Substance: CLARITHROMYCIN
     Indication: Product used for unknown indication
     Dosage: 500 MILLIGRAM, BID
     Dates: start: 20220114, end: 20220119
  2. ACITRETIN [Suspect]
     Active Substance: ACITRETIN
     Indication: Erythrodermic psoriasis
     Dosage: 20 MILLIGRAM, QD
     Dates: start: 20220129, end: 20220202
  3. ACITRETIN [Suspect]
     Active Substance: ACITRETIN
     Dosage: 40 MILLIGRAM, QD
     Dates: start: 20220202, end: 20220209
  4. CLINDAMYCIN [Suspect]
     Active Substance: CLINDAMYCIN
     Indication: Product used for unknown indication
     Dosage: 600 MILLIGRAM, QID
     Dates: start: 20220126, end: 20220131
  5. TEICOPLANIN [Suspect]
     Active Substance: TEICOPLANIN
     Indication: Product used for unknown indication
     Dosage: 1000 MILLIGRAM, BID
     Dates: start: 20220120, end: 20220122
  6. TEICOPLANIN [Suspect]
     Active Substance: TEICOPLANIN
     Dosage: 1000 MILLIGRAM, QD
     Dates: start: 20220123, end: 20220207
  7. ENSTILAR [Concomitant]
     Active Substance: BETAMETHASONE DIPROPIONATE\CALCIPOTRIENE HYDRATE
     Dosage: 1 DOSAGE FORM, QD, (50MICROGRAMS/G / 0.5 MG/G)
  8. BETAMETHASONE DIPROPIONATE [Concomitant]
     Active Substance: BETAMETHASONE DIPROPIONATE
     Dosage: 1 DOSAGE FORM, BID
  9. DERMOL [Concomitant]
     Active Substance: BENZALKONIUM CHLORIDE\CHLORHEXIDINE HYDROCHLORIDE\ISOPROPYL MYRISTATE\PARAFFIN
     Dosage: UNK, PRN, (AS NECESSARY)
  10. NAPROXEN [Concomitant]
     Active Substance: NAPROXEN
     Dosage: 250 MILLIGRAM, TID
  11. Balneum Plus [Concomitant]
     Dosage: 1 DOSAGE FORM, TID

REACTIONS (2)
  - Liver function test abnormal [Recovering/Resolving]
  - Condition aggravated [Unknown]
